FAERS Safety Report 7457428-5 (Version None)
Quarter: 2011Q2

REPORT INFORMATION
  Report Type: 
  Country: None (occurrence: None)
  Receive Date: 20110504
  Receipt Date: 20110425
  Transmission Date: 20111010
  Serious: Yes (Hospitalization)
  Sender: FDA-Public Use
  Company Number: PHHY2011CA11383

PATIENT
  Sex: Female

DRUGS (13)
  1. ALTACE [Concomitant]
     Dosage: 10 MG, QD
  2. TYLENOL-500 [Concomitant]
     Dosage: UNK
  3. RAMIPRIL [Concomitant]
     Dosage: UNK
  4. ZOLEDRONIC ACID [Suspect]
     Indication: OSTEOPOROSIS
     Dosage: 5 MG, UNK
     Dates: start: 20100218
  5. ARAVA [Concomitant]
     Dosage: UNK
  6. VENTOLIN [Concomitant]
     Dosage: UNK
  7. POTASSIUM [Concomitant]
     Dosage: ONCE DAILY
  8. SPIRIVA [Concomitant]
     Dosage: UNK
  9. VITAMIN D [Concomitant]
     Dosage: UNK
  10. METOPROLOL SUCCINATE [Concomitant]
     Dosage: 50 MG, BID
  11. ADVAIR DISKUS 100/50 [Concomitant]
     Dosage: 250 UG, BID
  12. LEFLUNOMIDE [Concomitant]
     Dosage: 20 MG, QD
  13. DIGOXIN [Concomitant]
     Dosage: 0.062 MG, QD

REACTIONS (15)
  - TACHYARRHYTHMIA [None]
  - CARDIAC FAILURE CONGESTIVE [None]
  - HYPOKALAEMIA [None]
  - ATRIAL TACHYCARDIA [None]
  - RHEUMATOID ARTHRITIS [None]
  - CREPITATIONS [None]
  - BACK PAIN [None]
  - HYPONATRAEMIA [None]
  - ATRIAL FIBRILLATION [None]
  - WHITE BLOOD CELLS URINE POSITIVE [None]
  - CHRONIC OBSTRUCTIVE PULMONARY DISEASE [None]
  - TACHYPNOEA [None]
  - BLOOD ALKALINE PHOSPHATASE INCREASED [None]
  - HEART RATE IRREGULAR [None]
  - INTERNATIONAL NORMALISED RATIO INCREASED [None]
